FAERS Safety Report 12284110 (Version 2)
Quarter: 2018Q2

REPORT INFORMATION
  Report Type: Spontaneous
  Country: US (occurrence: US)
  Receive Date: 20160419
  Receipt Date: 20180416
  Transmission Date: 20180711
  Serious: Yes (Hospitalization)
  Sender: FDA-Public Use
  Company Number: US-BIOGEN-2016BI00223560

PATIENT
  Sex: Female

DRUGS (2)
  1. PLEGRIDY [Suspect]
     Active Substance: PEGINTERFERON BETA-1A
     Indication: MULTIPLE SCLEROSIS
     Route: 065
     Dates: start: 20160119
  2. LISINOPRIL. [Concomitant]
     Active Substance: LISINOPRIL
     Indication: BLOOD PRESSURE ABNORMAL
     Route: 065

REACTIONS (7)
  - Cold sweat [Recovered/Resolved]
  - Drug hypersensitivity [Recovered/Resolved]
  - Blood pressure abnormal [Unknown]
  - Device malfunction [Unknown]
  - Pallor [Recovered/Resolved]
  - Gait disturbance [Not Recovered/Not Resolved]
  - Aphasia [Recovered/Resolved]
